FAERS Safety Report 8050870-3 (Version None)
Quarter: 2012Q1

REPORT INFORMATION
  Report Type: 
  Country: None (occurrence: None)
  Receive Date: 20120117
  Receipt Date: 20120105
  Transmission Date: 20120608
  Serious: Yes (Congenital Anomaly, Other)
  Sender: FDA-Public Use
  Company Number: PHEH2012US000846

PATIENT

DRUGS (1)
  1. EXJADE [Suspect]
     Dosage: MATERNAL DOSE- 1250 MG, QD
     Route: 064

REACTIONS (5)
  - CARDIAC DISORDER [None]
  - FOETAL EXPOSURE DURING PREGNANCY [None]
  - CARDIAC ANEURYSM [None]
  - HEART DISEASE CONGENITAL [None]
  - PERICARDIAL EFFUSION [None]
